FAERS Safety Report 5985704-1 (Version None)
Quarter: 2008Q4

REPORT INFORMATION
  Report Type: 
  Country: None (occurrence: None)
  Receive Date: 20081208
  Receipt Date: 20080329
  Transmission Date: 20090506
  Serious: No
  Sender: FDA-Public Use
  Company Number: US-AMGEN-KDL272075

PATIENT
  Sex: Female

DRUGS (2)
  1. ENBREL [Suspect]
     Indication: RHEUMATOID ARTHRITIS
     Route: 058
     Dates: start: 20070924
  2. PLAQUENIL [Concomitant]
     Dates: start: 20070401

REACTIONS (4)
  - BURNING SENSATION [None]
  - COUGH [None]
  - JOINT STIFFNESS [None]
  - PAIN [None]
